FAERS Safety Report 15959096 (Version 8)
Quarter: 2020Q1

REPORT INFORMATION
  Report Type: Report from Study
  Country: CA (occurrence: CA)
  Receive Date: 20190214
  Receipt Date: 20200210
  Transmission Date: 20200409
  Serious: Yes (Hospitalization)
  Sender: FDA-Public Use
  Company Number: CA-AMGEN-CANCT2019020918

PATIENT
  Age: 68 Year
  Sex: Male
  Weight: 93.65 kg

DRUGS (26)
  1. DARATUMUMAB [Suspect]
     Active Substance: DARATUMUMAB
     Indication: PLASMA CELL MYELOMA
     Dosage: 1504 MILLIGRAM, PER CHEMO REGIM
     Route: 042
     Dates: start: 20171115
  2. CANNABIS SATIVA OIL [Concomitant]
     Active Substance: CANNABIS SATIVA SUBSP. INDICA TOP
     Dosage: 0.5 MILLILITER
     Dates: start: 2016
  3. PANTOPRAZOLE [Concomitant]
     Active Substance: PANTOPRAZOLE
     Dosage: 40 MILLIGRAM
     Dates: start: 20171115
  4. MOXIFLOXACIN. [Concomitant]
     Active Substance: MOXIFLOXACIN
     Dosage: 400 MILLIGRAM
     Dates: start: 201901
  5. CARFILZOMIB [Suspect]
     Active Substance: CARFILZOMIB
     Indication: PLASMA CELL MYELOMA
     Dosage: 123 MILLIGRAM, PER CHEMO REGIM
     Route: 042
     Dates: start: 20171115
  6. DEXAMETHASONE. [Concomitant]
     Active Substance: DEXAMETHASONE
     Indication: PLASMA CELL MYELOMA
     Dosage: 04-40 MILLIGRAM
     Dates: start: 20171115
  7. ASPIRIN [ACETYLSALICYLIC ACID] [Concomitant]
     Active Substance: ASPIRIN
     Dosage: 81 MILLIGRAM
     Dates: start: 20171115
  8. BENADRYL [Concomitant]
     Active Substance: DIPHENHYDRAMINE HYDROCHLORIDE
     Dosage: 50 MILLIGRAM
     Route: 042
     Dates: start: 20171116
  9. DARATUMUMAB [Suspect]
     Active Substance: DARATUMUMAB
     Dosage: UNK UNK, PER CHEMO REGIM
     Route: 042
     Dates: start: 20190306
  10. ACYCLOVIR. [Concomitant]
     Active Substance: ACYCLOVIR
     Dosage: 400 MILLIGRAM
     Dates: start: 20171115
  11. HEALTHY ACCENTS TUSSIN COUGH ADULT [Concomitant]
     Active Substance: DEXTROMETHORPHAN HYDROBROMIDE
     Dosage: 30 MILLILITER
     Dates: start: 20181102
  12. OLANZAPINE. [Concomitant]
     Active Substance: OLANZAPINE
     Dosage: 2.5 MILLIGRAM
     Dates: start: 20171115
  13. MONTELUKAST [Concomitant]
     Active Substance: MONTELUKAST SODIUM
     Dosage: 10 MILLIGRAM
     Route: 048
     Dates: start: 20171115
  14. LAX A DAY PHARMA [Concomitant]
     Dosage: 1 UNK
     Dates: start: 20171114
  15. PROCHLORPERAZINE. [Concomitant]
     Active Substance: PROCHLORPERAZINE
     Dosage: 10 MILLIGRAM
     Route: 048
     Dates: start: 20171116
  16. ACETAMINOPHEN. [Concomitant]
     Active Substance: ACETAMINOPHEN
     Dosage: 650 MILLIGRAM
     Route: 048
     Dates: start: 20171116
  17. HYDROMORPHONE [Concomitant]
     Active Substance: HYDROMORPHONE
     Dosage: 2 MILLIGRAM
     Dates: start: 20171114
  18. EPREX [Concomitant]
     Active Substance: ERYTHROPOIETIN
     Dosage: 40000 UNK AND 40000 INTERNATIONAL UNIT
     Dates: start: 20180221
  19. TYLENOL [Concomitant]
     Active Substance: ACETAMINOPHEN
     Dosage: 650 MILLIGRAM
     Route: 048
     Dates: start: 20171129
  20. DIPHENHYDRAMINE. [Concomitant]
     Active Substance: DIPHENHYDRAMINE
     Dosage: 50 MILLIGRAM
     Route: 042
     Dates: start: 20180919
  21. ZOPICLONE [Concomitant]
     Active Substance: ZOPICLONE
     Dosage: 7.5 MILLIGRAM
     Dates: start: 201803
  22. ZOMETA [Concomitant]
     Active Substance: ZOLEDRONIC ACID
     Dosage: 4 MILLIGRAM
     Dates: start: 20160615
  23. DEXTROSE WATER [Concomitant]
     Dosage: 50-100 MILLILITER
     Dates: start: 20180808
  24. ONDANSETRON [Concomitant]
     Active Substance: ONDANSETRON
     Dosage: 8 TO 16 MILLIGRAM
     Route: 048
     Dates: start: 20171115
  25. LEVOFLOXACIN. [Concomitant]
     Active Substance: LEVOFLOXACIN
     Dosage: 250 MILLIGRAM
     Dates: start: 20181103, end: 20181108
  26. STEMETIL [Concomitant]
     Active Substance: PROCHLORPERAZINE
     Dosage: 10 MILLIGRAM
     Route: 042
     Dates: start: 20171122

REACTIONS (1)
  - Atrial flutter [Recovered/Resolved]

NARRATIVE: CASE EVENT DATE: 20190205
